FAERS Safety Report 24881553 (Version 1)
Quarter: 2025Q1

REPORT INFORMATION
  Report Type: Spontaneous
  Country: GB (occurrence: GB)
  Receive Date: 20250124
  Receipt Date: 20250124
  Transmission Date: 20250408
  Serious: Yes (Hospitalization)
  Sender: ROCHE
  Company Number: None

PATIENT
  Age: 46 Year
  Sex: Female

DRUGS (2)
  1. OCRELIZUMAB [Suspect]
     Active Substance: OCRELIZUMAB
     Indication: Relapsing multiple sclerosis
     Dosage: 600MG EVERY 6 MONTHS
     Route: 065
     Dates: start: 20221125, end: 20240822
  2. APIXABAN [Concomitant]
     Active Substance: APIXABAN
     Route: 065

REACTIONS (1)
  - Cystadenocarcinoma ovary [Not Recovered/Not Resolved]

NARRATIVE: CASE EVENT DATE: 20240901
